FAERS Safety Report 6027828-9 (Version None)
Quarter: 2009Q1

REPORT INFORMATION
  Report Type: 
  Country: None (occurrence: None)
  Receive Date: 20090105
  Receipt Date: 20081231
  Transmission Date: 20090719
  Serious: Yes (Hospitalization, Other)
  Sender: FDA-Public Use
  Company Number: US-ROXANE LABORATORIES, INC.-2008-RO-00458RO

PATIENT
  Sex: Male

DRUGS (12)
  1. PREDNISONE TAB [Suspect]
     Indication: PROSTATE CANCER
     Dosage: 10MG
     Route: 048
     Dates: start: 20080310
  2. DEXAMETHASONE [Suspect]
     Dosage: 20MG
     Route: 042
     Dates: start: 20081015
  3. DEXAMETHASONE [Suspect]
     Dosage: 8MG
     Route: 042
     Dates: start: 20081016, end: 20081017
  4. DEXAMETHASONE [Suspect]
     Dosage: 6MG
     Route: 042
     Dates: start: 20081018, end: 20081019
  5. DOCETAXEL [Suspect]
     Indication: PROSTATE CANCER
     Route: 042
     Dates: start: 20080310, end: 20080918
  6. DOCETAXEL [Suspect]
     Route: 042
     Dates: start: 20080717, end: 20080919
  7. CP-751,871 [Suspect]
     Indication: PROSTATE CANCER
     Route: 042
     Dates: start: 20080717, end: 20080918
  8. ZOMETA [Concomitant]
     Dates: start: 20080717
  9. ATENOLOL [Concomitant]
     Dates: start: 20080827
  10. TRAMADOL HCL [Concomitant]
     Dates: start: 20080421, end: 20081019
  11. FENTANYL-100 [Concomitant]
     Dates: start: 20081015, end: 20081019
  12. FENTANYL-100 [Concomitant]
     Dosage: 50MG
     Dates: start: 20081019, end: 20081019

REACTIONS (5)
  - AXONAL NEUROPATHY [None]
  - DIABETIC KETOACIDOSIS [None]
  - PNEUMONIA STAPHYLOCOCCAL [None]
  - SEPTIC SHOCK [None]
  - SPLENIC INFARCTION [None]
